FAERS Safety Report 5413365-9 (Version None)
Quarter: 2007Q3

REPORT INFORMATION
  Report Type: 
  Country: None (occurrence: None)
  Receive Date: 20070814
  Receipt Date: 20070727
  Transmission Date: 20080115
  Serious: Yes (Other)
  Sender: FDA-Public Use
  Company Number: FR-JNJFOC-20070703395

PATIENT
  Sex: Female

DRUGS (3)
  1. HALDOL DECANOAS [Suspect]
     Indication: AGITATION
     Route: 030
  2. HALDOL DECANOAS [Suspect]
     Indication: PSYCHOTIC DISORDER
     Route: 030
  3. ALPRAZOLAM [Concomitant]
     Indication: ANXIETY
     Route: 048

REACTIONS (7)
  - BLOOD PROLACTIN INCREASED [None]
  - DYSURIA [None]
  - GALACTORRHOEA [None]
  - OVERDOSE [None]
  - TORTICOLLIS [None]
  - URINARY RETENTION [None]
  - WRONG DRUG ADMINISTERED [None]
